FAERS Safety Report 21306777 (Version 3)
Quarter: 2022Q3

REPORT INFORMATION
  Report Type: Spontaneous
  Country: US (occurrence: US)
  Receive Date: 20220908
  Receipt Date: 20220913
  Transmission Date: 20221027
  Serious: No
  Sender: FDA-Public Use
  Company Number: US-PFIZER INC-202201135388

PATIENT
  Age: 70 Year
  Sex: Female
  Weight: 54.422 kg

DRUGS (1)
  1. PAXLOVID [Suspect]
     Active Substance: NIRMATRELVIR\RITONAVIR
     Indication: COVID-19 treatment
     Dosage: UNK, 2X/DAY(ONCE IN THE MORNING AND ONCE IN THE EVENING)
     Dates: start: 20220830, end: 202209

REACTIONS (12)
  - Off label use [Unknown]
  - Nausea [Recovering/Resolving]
  - Dysgeusia [Unknown]
  - Illness [Recovered/Resolved]
  - Vomiting [Unknown]
  - Diarrhoea [Recovered/Resolved]
  - Asthenia [Not Recovered/Not Resolved]
  - Eructation [Unknown]
  - Gastric disorder [Unknown]
  - Headache [Not Recovered/Not Resolved]
  - Fatigue [Unknown]
  - Dyspepsia [Unknown]

NARRATIVE: CASE EVENT DATE: 20220101
